FAERS Safety Report 13192716 (Version 1)
Quarter: 2017Q1

REPORT INFORMATION
  Report Type: Other
  Country: GB (occurrence: GB)
  Receive Date: 20170207
  Receipt Date: 20170207
  Transmission Date: 20170428
  Serious: Yes (Hospitalization)
  Sender: FDA-Public Use
  Company Number: GB-JUBILANT GENERICS LIMITED-1062827

PATIENT
  Age: 47 Year
  Sex: Male

DRUGS (5)
  1. ZOPICLONE [Suspect]
     Active Substance: ZOPICLONE
  2. DIAZEPAM. [Suspect]
     Active Substance: DIAZEPAM
  3. OLANZAPINE. [Suspect]
     Active Substance: OLANZAPINE
  4. VENLAFAXINE [Suspect]
     Active Substance: VENLAFAXINE HYDROCHLORIDE
  5. CHAMPAGNE [Suspect]
     Active Substance: WINE

REACTIONS (9)
  - Tachycardia [Unknown]
  - Loss of consciousness [Unknown]
  - Intentional overdose [Recovered/Resolved]
  - Hyperthermia [Unknown]
  - Acidosis [Unknown]
  - Electrocardiogram QT prolonged [Unknown]
  - Multiple organ dysfunction syndrome [Recovered/Resolved with Sequelae]
  - Hyperkalaemia [Unknown]
  - Hypotension [Unknown]

NARRATIVE: CASE EVENT DATE: 20170123
